FAERS Safety Report 21919961 (Version 1)
Quarter: 2023Q1

REPORT INFORMATION
  Report Type: Spontaneous
  Country: FR (occurrence: FR)
  Receive Date: 20230127
  Receipt Date: 20230127
  Transmission Date: 20230418
  Serious: Yes (Life-Threatening, Hospitalization)
  Sender: FDA-Public Use
  Company Number: FR-ROCHE-3267235

PATIENT
  Age: 39 Year
  Sex: Male

DRUGS (8)
  1. DIAZEPAM [Suspect]
     Active Substance: DIAZEPAM
     Indication: Product used for unknown indication
     Route: 065
  2. BROMAZEPAM [Suspect]
     Active Substance: BROMAZEPAM
     Indication: Product used for unknown indication
     Dosage: 1 AND 10 TABLET PER DAY
     Route: 065
     Dates: start: 2012
  3. CLONAZEPAM [Suspect]
     Active Substance: CLONAZEPAM
     Indication: Product used for unknown indication
     Route: 065
  4. METHADONE [Suspect]
     Active Substance: METHADONE HYDROCHLORIDE
     Indication: Product used for unknown indication
     Route: 065
  5. ALPRAZOLAM [Suspect]
     Active Substance: ALPRAZOLAM
     Indication: Product used for unknown indication
     Route: 065
     Dates: start: 2012
  6. CHARCOAL [Concomitant]
     Active Substance: ACTIVATED CHARCOAL
     Indication: Product used for unknown indication
  7. INSULIN NOS [Concomitant]
     Active Substance: INSULIN NOS
     Indication: Product used for unknown indication
  8. SODIUM CHLORIDE [Concomitant]
     Active Substance: SODIUM CHLORIDE
     Indication: Product used for unknown indication

REACTIONS (11)
  - Coma [Recovered/Resolved]
  - Toxic encephalopathy [Recovered/Resolved]
  - Pneumonitis aspiration [Unknown]
  - Rhabdomyolysis [Unknown]
  - Hyperkalaemia [Recovering/Resolving]
  - Toxicity to various agents [Unknown]
  - Hepatic cytolysis [Recovering/Resolving]
  - Hyperammonaemia [Recovering/Resolving]
  - Encephalopathy [Recovering/Resolving]
  - Suicide attempt [Recovered/Resolved]
  - Intentional product misuse [Unknown]
